FAERS Safety Report 23442045 (Version 1)
Quarter: 2024Q1

REPORT INFORMATION
  Report Type: Spontaneous
  Country: GB (occurrence: GB)
  Receive Date: 20240125
  Receipt Date: 20240125
  Transmission Date: 20240409
  Serious: Yes (Other)
  Sender: FDA-Public Use
  Company Number: None

PATIENT
  Age: 65 Year
  Sex: Female
  Weight: 69 kg

DRUGS (4)
  1. SERTRALINE [Suspect]
     Active Substance: SERTRALINE HYDROCHLORIDE
     Indication: Product used for unknown indication
     Dosage: USE AS DIRECTED
     Dates: start: 20231012
  2. EZETIMIBE [Concomitant]
     Active Substance: EZETIMIBE
     Dates: start: 20231012
  3. SIMVASTATIN [Concomitant]
     Active Substance: SIMVASTATIN
     Dosage: NIGHT
     Dates: start: 20230222, end: 20231023
  4. TIOTROPIUM BROMIDE [Concomitant]
     Active Substance: TIOTROPIUM BROMIDE
     Dosage: REPLACE DEVICE EVERY ...
     Route: 055
     Dates: start: 20230222

REACTIONS (2)
  - Migraine [Recovered/Resolved]
  - Heart rate decreased [Unknown]
